FAERS Safety Report 23250398 (Version 5)
Quarter: 2024Q1

REPORT INFORMATION
  Report Type: Report from Study
  Country: US (occurrence: US)
  Receive Date: 20231201
  Receipt Date: 20240327
  Transmission Date: 20240409
  Serious: Yes (Other)
  Sender: FDA-Public Use
  Company Number: US-ABBVIE-5520028

PATIENT
  Age: 71 Year
  Sex: Male

DRUGS (3)
  1. IMBRUVICA [Suspect]
     Active Substance: IBRUTINIB
     Indication: Chronic lymphocytic leukaemia
     Dosage: THERAPY STOP DATE MAY 2016
     Route: 048
     Dates: start: 20160501
  2. IMBRUVICA [Suspect]
     Active Substance: IBRUTINIB
     Indication: Chronic lymphocytic leukaemia
     Route: 048
     Dates: start: 20160520, end: 20231228
  3. IMBRUVICA [Suspect]
     Active Substance: IBRUTINIB
     Indication: Chronic lymphocytic leukaemia
     Route: 048
     Dates: start: 20240214

REACTIONS (10)
  - Dyspnoea [Unknown]
  - Nasopharyngitis [Unknown]
  - Atrial fibrillation [Unknown]
  - Aortic valve thickening [Unknown]
  - Onychoclasis [Unknown]
  - Onychomycosis [Unknown]
  - Fatigue [Unknown]
  - Neck pain [Unknown]
  - Dry skin [Unknown]
  - Loss of consciousness [Unknown]

NARRATIVE: CASE EVENT DATE: 20231201
